FAERS Safety Report 24110186 (Version 2)
Quarter: 2024Q3

REPORT INFORMATION
  Report Type: Spontaneous
  Country: AR (occurrence: AR)
  Receive Date: 20240718
  Receipt Date: 20240724
  Transmission Date: 20241017
  Serious: Yes (Other)
  Sender: NOVARTIS
  Company Number: AR-002147023-NVSC2024AR145617

PATIENT
  Age: 79 Year
  Sex: Female

DRUGS (2)
  1. LETROZOLE [Suspect]
     Active Substance: LETROZOLE
     Indication: Breast cancer metastatic
     Dosage: UNK (4 YEARS 7 MONTHS 18 DAYS)
     Route: 065
     Dates: start: 20190306, end: 20231023
  2. IRON [Concomitant]
     Active Substance: IRON
     Indication: Product used for unknown indication
     Dosage: UNK
     Route: 065
     Dates: end: 20231023

REACTIONS (5)
  - Platelet count decreased [Unknown]
  - Decreased immune responsiveness [Not Recovered/Not Resolved]
  - Anaemia [Unknown]
  - Agitation [Unknown]
  - Ulcer [Not Recovered/Not Resolved]
